FAERS Safety Report 7031967-3 (Version None)
Quarter: 2010Q4

REPORT INFORMATION
  Report Type: 
  Country: None (occurrence: None)
  Receive Date: 20101007
  Receipt Date: 20100924
  Transmission Date: 20110411
  Serious: Yes (Hospitalization, Disabling)
  Sender: FDA-Public Use
  Company Number: CH-ELI_LILLY_AND_COMPANY-CH201008006744

PATIENT
  Age: 31 Year
  Sex: Female
  Weight: 90 kg

DRUGS (11)
  1. FLUCTINE [Suspect]
     Indication: AFFECTIVE DISORDER
     Dosage: UNK UNK, DAILY (1/D)
     Route: 048
     Dates: start: 20100401
  2. FLUCTINE [Suspect]
     Dosage: 30 MG, DAILY (1/D)
  3. FLUCTINE [Suspect]
     Dosage: 40 MG, DAILY (1/D)
     Dates: start: 20100615
  4. HUMIRA [Concomitant]
     Indication: ANKYLOSING SPONDYLITIS
     Dosage: 40 MG, OTHER
     Route: 058
     Dates: start: 20100629, end: 20100720
  5. LYRICA [Concomitant]
     Indication: PAIN
     Dosage: 50 MG, 3/D
     Route: 048
  6. ACETAMINOPHEN [Concomitant]
     Indication: PAIN
     Dosage: UNK G,
     Route: 048
  7. NAPROXEN [Concomitant]
     Indication: PAIN
     Dosage: 500 MG, 2/D
     Route: 048
  8. OXYCONTIN [Concomitant]
     Indication: PAIN
     Dosage: 20 MG, 2/D
     Route: 048
  9. OXYCODONE HCL [Concomitant]
     Indication: PAIN
     Dosage: UNK MG,
     Route: 048
  10. VALIUM [Concomitant]
     Indication: MUSCLE CONTRACTURE
     Dosage: 5 MG, DAILY (1/D)
     Route: 048
  11. TEMESTA [Concomitant]
     Indication: ANXIETY DISORDER
     Dosage: MG, UNK
     Route: 048

REACTIONS (5)
  - CHOREOATHETOSIS [None]
  - DEPRESSION [None]
  - OFF LABEL USE [None]
  - PSEUDOPARALYSIS [None]
  - TREMOR [None]
